FAERS Safety Report 23095785 (Version 2)
Quarter: 2023Q4

REPORT INFORMATION
  Report Type: Spontaneous
  Country: US (occurrence: US)
  Receive Date: 20231023
  Receipt Date: 20231220
  Transmission Date: 20240110
  Serious: Yes (Other)
  Sender: FDA-Public Use
  Company Number: US-JNJFOC-20231044320

PATIENT
  Sex: Female

DRUGS (5)
  1. TYLENOL PM [Suspect]
     Active Substance: ACETAMINOPHEN\DIPHENHYDRAMINE
     Indication: Sleep disorder
     Dosage: STRENGTH-APPROXIMATELY 500MG, FIRST, SECOND AND THIRD TRIMESTER, ONE PILL A DAY AT NIGHT,
     Route: 064
     Dates: start: 200301, end: 200310
  2. ESCITALOPRAM [Concomitant]
     Active Substance: ESCITALOPRAM OXALATE
     Indication: Depression
     Route: 064
  3. ZOLOFT [Concomitant]
     Active Substance: SERTRALINE HYDROCHLORIDE
     Indication: Depression
     Route: 064
     Dates: start: 1997
  4. OLANZAPINE [Concomitant]
     Active Substance: OLANZAPINE
     Indication: Product used for unknown indication
     Route: 065
  5. GUANFACINE HYDROCHLORIDE [Concomitant]
     Active Substance: GUANFACINE HYDROCHLORIDE
     Indication: Product used for unknown indication
     Dosage: GUANFACINE HCL 1MG TABLET 1 1/2 TABLET QAM, THEN 1 1/2 TABLET IN PM
     Route: 065

REACTIONS (3)
  - Autism spectrum disorder [Unknown]
  - Foetal exposure during pregnancy [Unknown]
  - Attention deficit hyperactivity disorder [Unknown]

NARRATIVE: CASE EVENT DATE: 20030101
